FAERS Safety Report 8912193 (Version 2)
Quarter: 2013Q1

REPORT INFORMATION
  Report Type: Spontaneous
  Country: PH (occurrence: PH)
  Receive Date: 20121115
  Receipt Date: 20130213
  Transmission Date: 20140127
  Serious: Yes (Death, Life-Threatening)
  Sender: FDA-Public Use
  Company Number: PH-BAXTER-2012BAX021599

PATIENT
  Age: 61 Year
  Sex: Female

DRUGS (2)
  1. BUMINATE 25% [Suspect]
     Indication: PRODUCT USED FOR UNKNOWN INDICATION
     Dosage: 4 VIALS
     Route: 065
  2. LASIX [Suspect]
     Indication: PRODUCT USED FOR UNKNOWN INDICATION
     Route: 065

REACTIONS (9)
  - Anaphylactoid reaction [Unknown]
  - Hypovolaemic shock [Fatal]
  - Upper gastrointestinal haemorrhage [Fatal]
  - Oesophageal varices haemorrhage [Fatal]
  - Acute hepatic failure [Fatal]
  - Hepatic cirrhosis [Fatal]
  - Non-alcoholic steatohepatitis [Fatal]
  - Hypertension [Fatal]
  - Wrong technique in drug usage process [Unknown]
